FAERS Safety Report 9347835 (Version 1)
Quarter: 2013Q2

REPORT INFORMATION
  Report Type: Spontaneous
  Country: US (occurrence: None)
  Receive Date: 20130612
  Receipt Date: 20130612
  Transmission Date: 20140414
  Serious: Yes (Other)
  Sender: FDA-Public Use
  Company Number: None

PATIENT
  Age: 47 Year
  Sex: Female

DRUGS (7)
  1. HYDROMORPHONE [Suspect]
     Indication: PAIN
     Route: 048
     Dates: start: 20130301, end: 20130331
  2. TACROLIMUS [Concomitant]
  3. PROCARDIA [Concomitant]
  4. METOPROLOL [Concomitant]
  5. INSULIN GEMFIBROZIL [Concomitant]
  6. GABAPENTIN [Concomitant]
  7. VITAMIN D [Concomitant]

REACTIONS (1)
  - Drug screen negative [None]
